FAERS Safety Report 8022680-4 (Version None)
Quarter: 2011Q4

REPORT INFORMATION
  Report Type: 
  Country: None (occurrence: None)
  Receive Date: 20111229
  Receipt Date: 20111214
  Transmission Date: 20120403
  Serious: Yes (Disabling)
  Sender: FDA-Public Use
  Company Number: 1000026515

PATIENT
  Age: 79 Year
  Sex: Female
  Weight: 71 kg

DRUGS (9)
  1. CITALOPRAM HYDROBROMIDE [Suspect]
     Indication: PAIN
     Dosage: 10 MG (10 MG, 1 IN 1 D), ORAL
     Route: 048
     Dates: start: 20110615
  2. PANTOPRAZOLE SODIUM [Suspect]
     Indication: GASTROOESOPHAGEAL REFLUX DISEASE
     Dosage: 80 MG (80 MG, 1 IN 1 D), ORAL
     Route: 048
  3. DURAGESIC-100 [Suspect]
     Indication: PAIN
     Dosage: 1200 MICROGRAMS (50 MCG, 24 IN 1 D), TRANSDERMAL
     Route: 062
     Dates: start: 20110618, end: 20110703
  4. DURAGESIC-100 [Suspect]
     Indication: SCOLIOSIS
     Dosage: 1200 MICROGRAMS (50 MCG, 24 IN 1 D), TRANSDERMAL
     Route: 062
     Dates: start: 20110618, end: 20110703
  5. BELOC ZOK (METOPROLOL SUCCINATE) (METOPROLOL SUCCINATE) [Concomitant]
  6. NOVALGIN (METAMIZOLE) (METAMIZOLE) [Concomitant]
  7. DURAGESIC-100 [Suspect]
     Indication: PAIN
     Dosage: 600 MICROGRAMS (25 MCG, 24 IN 1 D), TRANSDERMAL
     Route: 062
  8. DURAGESIC-100 [Suspect]
     Indication: SCOLIOSIS
     Dosage: 600 MICROGRAMS (25 MCG, 24 IN 1 D), TRANSDERMAL
     Route: 062
  9. PANTOPRAZOLE SODIUM [Suspect]
     Indication: GASTROOESOPHAGEAL REFLUX DISEASE
     Dosage: 40 MG (40 MG, 1 IN 1 D), ORAL
     Route: 048

REACTIONS (20)
  - DELIRIUM [None]
  - HYPERVENTILATION [None]
  - HYPONATRAEMIA [None]
  - INFLUENZA LIKE ILLNESS [None]
  - MUSCLE TWITCHING [None]
  - RESTLESSNESS [None]
  - AKATHISIA [None]
  - DRY MOUTH [None]
  - FALL [None]
  - CONTUSION [None]
  - NAUSEA [None]
  - BODY TEMPERATURE INCREASED [None]
  - DIZZINESS [None]
  - ANXIETY [None]
  - DIARRHOEA [None]
  - HYPERTENSIVE CRISIS [None]
  - OFF LABEL USE [None]
  - CONFUSIONAL STATE [None]
  - MEMORY IMPAIRMENT [None]
  - TACHYPNOEA [None]
